FAERS Safety Report 4990771-8 (Version None)
Quarter: 2006Q2

REPORT INFORMATION
  Report Type: 
  Country: None (occurrence: None)
  Receive Date: 20060503
  Receipt Date: 20040208
  Transmission Date: 20061013
  Serious: Yes (Hospitalization)
  Sender: FDA-Public Use
  Company Number: CA-BOEHRINGER INGELHEIM PHARMACEUTICALS, INC.-2004-CN-00042CN

PATIENT
  Sex: Female
  Weight: 68.9 kg

DRUGS (5)
  1. MICARDIS [Suspect]
     Indication: HYPERTENSION
     Route: 048
     Dates: start: 20030501
  2. LOSEC [Concomitant]
     Route: 048
     Dates: start: 20000101
  3. GLUCOSAMINE [Concomitant]
     Route: 048
     Dates: start: 20000101
  4. CALCIUM WITH VITAMIN D [Concomitant]
     Route: 048
     Dates: start: 20000101
  5. CELEBREX [Concomitant]
     Indication: ARTHRITIS
     Route: 048
     Dates: start: 20020101

REACTIONS (3)
  - BLOOD PRESSURE DECREASED [None]
  - HYPERHIDROSIS [None]
  - LOSS OF CONSCIOUSNESS [None]
